FAERS Safety Report 9364202 (Version 1)
Quarter: 2013Q2

REPORT INFORMATION
  Report Type: Spontaneous
  Country: TH (occurrence: TH)
  Receive Date: 20130624
  Receipt Date: 20130624
  Transmission Date: 20140414
  Serious: Yes (Hospitalization)
  Sender: FDA-Public Use
  Company Number: TH-BAYER-2013-073579

PATIENT
  Sex: Female
  Weight: 1.42 kg

DRUGS (4)
  1. INDOMETHACIN [Suspect]
     Indication: TOCOLYSIS
     Route: 064
  2. INDOMETHACIN [Suspect]
     Indication: TOCOLYSIS
     Route: 064
  3. NIFEDIPINE [Suspect]
     Indication: TOCOLYSIS
     Route: 064
  4. NIFEDIPINE [Suspect]
     Indication: TOCOLYSIS
     Route: 064

REACTIONS (7)
  - Cardiac failure [None]
  - Hydrops foetalis [None]
  - Ascites [None]
  - Pleural effusion [None]
  - Pericardial effusion [None]
  - Skin oedema [None]
  - Foetal exposure during pregnancy [None]
